FAERS Safety Report 9096373 (Version 1)
Quarter: 2013Q1

REPORT INFORMATION
  Report Type: Spontaneous
  Country: US (occurrence: None)
  Receive Date: 20130219
  Receipt Date: 20130219
  Transmission Date: 20140127
  Serious: No
  Sender: FDA-Public Use
  Company Number: None

PATIENT
  Sex: Female
  Weight: 55.34 kg

DRUGS (1)
  1. BUPROPION HCL [Suspect]
     Indication: TOBACCO ABUSE
     Dosage: 1 TAB 2 TIMES
     Dates: start: 20130209

REACTIONS (2)
  - Anxiety [None]
  - Product substitution issue [None]
